FAERS Safety Report 9221564 (Version 1)
Quarter: 2013Q1

REPORT INFORMATION
  Report Type: Spontaneous
  Country: US (occurrence: None)
  Receive Date: 20120831
  Receipt Date: 20120831
  Transmission Date: 20140127
  Serious: No
  Sender: FDA-Public Use
  Company Number: 1000031420

PATIENT
  Age: 68 Year
  Sex: Female

DRUGS (13)
  1. DALIRESP [Suspect]
     Indication: CHRONIC OBSTRUCTIVE PULMONARY DISEASE
     Dosage: 1 N !
     Route: 048
     Dates: start: 201206, end: 201206
  2. ACYCLOVIR (ACYCLOVIR) [Concomitant]
  3. ALPHAGAN (BRIMONIDINE TARTRATE) (BRIMONIDINE TARTRATE) [Concomitant]
  4. COMBIVENT(COMBIVENT)(COMBIVENT) [Concomitant]
  5. CORTEF (HYDROCORTISONE) [Concomitant]
  6. EFFEXOR XR (VENLAFAXINE HYDROCHOLORIDE) [Concomitant]
  7. LEVOTHYROXINE (LEVOTHYROXINE SODIUM) [Concomitant]
  8. PROVENTIL HFA (ALBUTEROL SULFATE) (ALBUTEROL SULFATE) [Concomitant]
  9. SPIRIVA(TIOTROPIUM BROMIDE)(TIOTROPIUM BROMIDE) [Concomitant]
  10. SYMBICORT(BUDESONIDE W/ FORMOTEROL FUMARATE)(BUDESONIDE W/FORMOTEROL FUMARATE) [Concomitant]
  11. VITAMIN D (VITAMIN D) (VITAMIN D) [Concomitant]
  12. XANAX (ALPRAZOLAM) [Concomitant]
  13. XOPENEX(LEVOSALBUTAMOL HYDROCHLORIDE)( LEVOSALBUTAMOL HYDROCHLORIDE) [Concomitant]

REACTIONS (1)
  - Feeling abnormal [None]
